FAERS Safety Report 7978529-9 (Version None)
Quarter: 2011Q4

REPORT INFORMATION
  Report Type: 
  Country: None (occurrence: None)
  Receive Date: 20111214
  Receipt Date: 20111202
  Transmission Date: 20120403
  Serious: Yes (Other)
  Sender: FDA-Public Use
  Company Number: US-JNJFOC-20111202031

PATIENT
  Sex: Female
  Weight: 71.67 kg

DRUGS (4)
  1. REMICADE [Suspect]
     Route: 042
     Dates: start: 20090101, end: 20110101
  2. REMICADE [Suspect]
     Indication: RHEUMATOID ARTHRITIS
     Route: 042
     Dates: start: 20110101, end: 20110901
  3. PLAQUENIL [Suspect]
     Indication: PRODUCT USED FOR UNKNOWN INDICATION
     Route: 065
  4. METHOTREXATE [Concomitant]
     Indication: RHEUMATOID ARTHRITIS
     Route: 065

REACTIONS (7)
  - MACULAR DEGENERATION [None]
  - CATARACT [None]
  - PAIN [None]
  - DACRYOSTENOSIS ACQUIRED [None]
  - SKIN ULCER [None]
  - INFECTED BITES [None]
  - ECZEMA [None]
